FAERS Safety Report 21710947 (Version 1)
Quarter: 2022Q4

REPORT INFORMATION
  Report Type: Spontaneous
  Country: ES (occurrence: ES)
  Receive Date: 20221212
  Receipt Date: 20221212
  Transmission Date: 20230112
  Serious: Yes (Hospitalization)
  Sender: FDA-Public Use
  Company Number: None

PATIENT
  Age: 84 Year
  Sex: Female

DRUGS (8)
  1. LOSARTAN [Suspect]
     Active Substance: LOSARTAN
     Indication: Cardiac failure
     Dosage: 100 MG, C/24 H
     Route: 048
     Dates: start: 20220613, end: 20220614
  2. PREGABALINA NORMON [Concomitant]
     Indication: Sciatica
     Dosage: 75.0 MG, C/12 H
     Route: 048
     Dates: start: 20160520
  3. NEBIVOLOL HYDROCHLORIDE [Concomitant]
     Active Substance: NEBIVOLOL HYDROCHLORIDE
     Indication: Essential hypertension
     Dosage: 5.0 MG, DE
     Route: 048
     Dates: start: 20131205
  4. OMEPRAZOLE [Concomitant]
     Active Substance: OMEPRAZOLE
     Indication: Product used for unknown indication
     Dosage: 20 MG, A-DECE
     Route: 048
     Dates: start: 20110711
  5. PARACETAMOL NORMON [Concomitant]
     Indication: Spinal osteoarthritis
     Dosage: 650 MG, DECOCE
     Route: 048
     Dates: start: 20180216
  6. LIORESAL [Concomitant]
     Active Substance: BACLOFEN
     Indication: Sciatica
     Dosage: 10 MG, DECOCE
     Route: 048
     Dates: start: 20180615
  7. FENTANYL [Concomitant]
     Active Substance: FENTANYL
     Indication: Arthralgia
     Dosage: 1.0 PARCHE C/72 HORAS
     Route: 065
     Dates: start: 20211109
  8. FUROSEMIDE [Concomitant]
     Active Substance: FUROSEMIDE
     Indication: Cardiac failure
     Dosage: 40 MG, A-DE
     Route: 048
     Dates: start: 20220614

REACTIONS (2)
  - Acute kidney injury [Recovered/Resolved]
  - Hypotension [Recovered/Resolved]

NARRATIVE: CASE EVENT DATE: 20220614
